FAERS Safety Report 5339433-8 (Version None)
Quarter: 2007Q2

REPORT INFORMATION
  Report Type: 
  Country: None (occurrence: None)
  Receive Date: 20070404
  Receipt Date: 20060815
  Transmission Date: 20071010
  Serious: Yes (Other)
  Sender: FDA-Public Use
  Company Number: 2006076503

PATIENT
  Age: 63 Year
  Sex: Female

DRUGS (4)
  1. GEODON [Suspect]
     Indication: BIPOLAR DISORDER
     Dosage: 160 MG (80 MG, 2 IN 1 D)
     Dates: start: 20060315
  2. REMERON [Concomitant]
  3. ZOLOFT [Concomitant]
  4. LORAZEPAM [Concomitant]

REACTIONS (1)
  - HAEMATURIA [None]
